FAERS Safety Report 14481754 (Version 2)
Quarter: 2018Q3

REPORT INFORMATION
  Report Type: Spontaneous
  Country: US (occurrence: US)
  Receive Date: 20180202
  Receipt Date: 20180801
  Transmission Date: 20181010
  Serious: Yes (Hospitalization, Other)
  Sender: FDA-Public Use
  Company Number: US-ALLERGAN-1805186US

PATIENT
  Age: 52 Year
  Sex: Female
  Weight: 94.79 kg

DRUGS (6)
  1. HUMIRA [Suspect]
     Active Substance: ADALIMUMAB
     Indication: PSORIASIS
     Dosage: 40 MG, Q2WEEKS
     Route: 058
     Dates: start: 201504, end: 201710
  2. NORCO [Suspect]
     Active Substance: ACETAMINOPHEN\HYDROCODONE BITARTRATE
     Indication: ABDOMINAL PAIN
     Dosage: UNK
     Route: 065
     Dates: start: 2017
  3. HUMIRA [Suspect]
     Active Substance: ADALIMUMAB
     Dosage: 40 MG, Q WEEK
     Route: 058
     Dates: start: 20171205
  4. PREDNISONE. [Suspect]
     Active Substance: PREDNISONE
     Indication: ILEUS
     Dosage: UNK
     Route: 065
  5. HUMIRA [Suspect]
     Active Substance: ADALIMUMAB
     Indication: CROHN^S DISEASE
     Dosage: 40 MG, Q2WEEKS
     Route: 058
     Dates: start: 201505, end: 20170405
  6. HUMIRA [Suspect]
     Active Substance: ADALIMUMAB
     Dosage: 40 MG, Q WEEK
     Route: 058
     Dates: start: 201710, end: 20171121

REACTIONS (22)
  - Ileus [Recovered/Resolved]
  - Hypoaesthesia [Recovered/Resolved]
  - Headache [Recovered/Resolved]
  - Melanocytic naevus [Not Recovered/Not Resolved]
  - Respiratory tract congestion [Not Recovered/Not Resolved]
  - Foot fracture [Unknown]
  - Muscular weakness [Unknown]
  - Psoriasis [Not Recovered/Not Resolved]
  - Diarrhoea [Recovering/Resolving]
  - Scab [Not Recovered/Not Resolved]
  - Crohn^s disease [Recovered/Resolved]
  - Nasopharyngitis [Recovering/Resolving]
  - Psoriasis [Unknown]
  - Defaecation urgency [Recovering/Resolving]
  - Arthritis [Unknown]
  - Carpal tunnel syndrome [Recovered/Resolved]
  - Sinus congestion [Not Recovered/Not Resolved]
  - Dry skin [Not Recovered/Not Resolved]
  - Middle ear effusion [Not Recovered/Not Resolved]
  - Post procedural complication [Unknown]
  - Pain in extremity [Not Recovered/Not Resolved]
  - Dyspnoea [Recovering/Resolving]

NARRATIVE: CASE EVENT DATE: 2016
